FAERS Safety Report 19950663 (Version 2)
Quarter: 2021Q4

REPORT INFORMATION
  Report Type: Report from Study
  Country: AT (occurrence: AT)
  Receive Date: 20211013
  Receipt Date: 20211020
  Transmission Date: 20220303
  Serious: Yes (Hospitalization, Other)
  Sender: FDA-Public Use
  Company Number: AT-CELLTRION HEALTHCARE HUNGARY KFT-2021AT005351

PATIENT

DRUGS (42)
  1. TRASTUZUMAB [Suspect]
     Active Substance: TRASTUZUMAB
     Indication: Breast cancer metastatic
     Dosage: 420 MILLIGRAM (420 MG, EVERY 3 WEEKS)
     Route: 041
     Dates: start: 20181128, end: 20181128
  2. TRASTUZUMAB [Suspect]
     Active Substance: TRASTUZUMAB
     Dosage: 408 MILLIGRAM (EVERY 3 WEEKS)
     Route: 041
     Dates: start: 20181219, end: 20200424
  3. TRASTUZUMAB [Suspect]
     Active Substance: TRASTUZUMAB
     Dosage: 450 MILLIGRAM (EVERY 3 WEEKS)
     Route: 042
     Dates: start: 20180723, end: 20180904
  4. TRASTUZUMAB [Suspect]
     Active Substance: TRASTUZUMAB
     Dosage: 450 MILLIGRAM (EVERY 3 WEEKS)
     Route: 042
     Dates: start: 20171213, end: 20180514
  5. TRASTUZUMAB [Suspect]
     Active Substance: TRASTUZUMAB
     Dosage: 534 MILLIGRAM (EVERY 3 WEEKS)
     Route: 042
     Dates: start: 20170714, end: 20170824
  6. TRASTUZUMAB [Suspect]
     Active Substance: TRASTUZUMAB
     Dosage: 462 MILLIGRAM (EVERY 3 WEEKS)
     Route: 042
     Dates: start: 20180608, end: 20180608
  7. TRASTUZUMAB [Suspect]
     Active Substance: TRASTUZUMAB
     Dosage: 480 MILLIGRAM (EVERY 3 WEEKS)
     Route: 042
     Dates: start: 20170828, end: 20171030
  8. TRASTUZUMAB [Suspect]
     Active Substance: TRASTUZUMAB
     Dosage: 534 MILLIGRAM (EVERY 3 WEEKS)
     Route: 042
     Dates: start: 20170414, end: 20170619
  9. TRASTUZUMAB [Suspect]
     Active Substance: TRASTUZUMAB
     Dosage: 438 MILLIGRAM (EVERY 3 WEEKS)
     Route: 042
     Dates: start: 20180926, end: 20180926
  10. TRASTUZUMAB [Suspect]
     Active Substance: TRASTUZUMAB
     Dosage: 450 MILLIGRAM (EVERY 3 WEEKS)
     Route: 042
     Dates: start: 20200515
  11. DOCETAXEL [Suspect]
     Active Substance: DOCETAXEL
     Indication: Breast cancer metastatic
     Dosage: 137 MG, EVERY 3 WEEKS (DATE OF MOST RECENT DOSE: 23/JUL/2018)
     Route: 042
     Dates: start: 20180608, end: 20180608
  12. DOCETAXEL [Suspect]
     Active Substance: DOCETAXEL
     Dosage: 134.32 MG, EVERY 3 WEEKS (DATE OF MOST RECENT DOSE: 23/JUL/2018)
     Route: 042
     Dates: start: 20180723, end: 20180904
  13. DOCETAXEL [Suspect]
     Active Substance: DOCETAXEL
     Dosage: 132.78 MG, EVERY 3 WEEKS (DATE OF MOST RECENT DOSE: 23/JUL/2018)
     Route: 042
     Dates: start: 20180926, end: 20180926
  14. FULVESTRANT [Suspect]
     Active Substance: FULVESTRANT
     Indication: Breast cancer metastatic
     Dosage: 500 MILLIGRAM, BIWEEKLY (500 MG, EVERY 2 WEEKS (MOST RECENT DOSE PRIOR TO THE EVENT: 26/DEC/2018))
     Route: 030
     Dates: start: 20181128
  15. FULVESTRANT [Suspect]
     Active Substance: FULVESTRANT
     Dosage: 500 MILLIGRAM, BIWEEKLY (500 MG, EVERY 2 WEEKS (DOSAGE TEXT: ONGOING)
     Route: 030
     Dates: start: 20181226
  16. ANASTROZOLE [Suspect]
     Active Substance: ANASTROZOLE
     Indication: Breast cancer metastatic
     Dosage: 1 MILLIGRAM 1 MG, QD (MOST RECENT DOSE PRIOR TO AE 14/MAY/2018))
     Route: 048
     Dates: start: 20170324
  17. TRASTUZUMAB [Suspect]
     Active Substance: TRASTUZUMAB
     Indication: Breast cancer metastatic
     Dosage: 438 MG, EVERY 3 WEEKS
     Route: 041
     Dates: start: 20181017, end: 20181017
  18. TRASTUZUMAB [Suspect]
     Active Substance: TRASTUZUMAB
     Dosage: 712 MILLIGRAM (EVERY 3 WEEKS)
     Route: 041
     Dates: start: 20170324, end: 20170324
  19. TRASTUZUMAB [Suspect]
     Active Substance: TRASTUZUMAB
     Dosage: 438 MILLIGRAM (EVERY 3 WEEKS)
     Route: 041
     Dates: start: 20180926
  20. TRASTUZUMAB [Suspect]
     Active Substance: TRASTUZUMAB
     Dosage: 474 MG, EVERY 3 WEEKS
     Dates: start: 20171213, end: 20180514
  21. DOCETAXEL [Suspect]
     Active Substance: DOCETAXEL
     Indication: Breast cancer metastatic
     Dosage: 106.22 MILLIGRAM (106.22 MG, EVERY 3 WEEKS)
     Route: 042
     Dates: start: 20181017, end: 20181017
  22. DOCETAXEL [Suspect]
     Active Substance: DOCETAXEL
     Dosage: 106 MILLIGRAM (106.22 MG, EVERY 3 WEEKS)
     Route: 042
     Dates: start: 20181017, end: 20181017
  23. PERTUZUMAB [Suspect]
     Active Substance: PERTUZUMAB
     Indication: Breast cancer metastatic
     Dosage: 420 MILLIGRAM (420 MG, EVERY 3 WEEKS (ONGOING)
     Route: 042
     Dates: start: 20180723
  24. PERTUZUMAB [Suspect]
     Active Substance: PERTUZUMAB
     Dosage: 420 MILLIGRAM (420 MG, EVERY 3 WEEKS (ONGOING)
     Route: 042
     Dates: start: 20171213, end: 20180608
  25. PERTUZUMAB [Suspect]
     Active Substance: PERTUZUMAB
     Dosage: 420 MILLIGRAM (420 MG, EVERY 3 WEEKS (ONGOING)
     Route: 042
     Dates: start: 20170714, end: 20171030
  26. PERTUZUMAB [Suspect]
     Active Substance: PERTUZUMAB
     Dosage: 420 MILLIGRAM (420 MG, EVERY 3 WEEKS (ONGOING)
     Route: 042
     Dates: start: 20170414, end: 20170619
  27. PERTUZUMAB [Suspect]
     Active Substance: PERTUZUMAB
     Dosage: 840 MILLIGRAM (840 MG, EVERY 3 WEEKS (ONGOING)
     Route: 042
     Dates: start: 20170324, end: 20170324
  28. KYTRIL [Concomitant]
     Active Substance: GRANISETRON HYDROCHLORIDE
     Dosage: UNK (ONGOING = CHECKED)
     Dates: start: 20180608, end: 20181017
  29. ASPIRIN [Concomitant]
     Active Substance: ASPIRIN
     Indication: Hypertension
     Dosage: UNK
     Dates: start: 20171120, end: 20190615
  30. RANITIDINE HYDROCHLORIDE [Concomitant]
     Active Substance: RANITIDINE HYDROCHLORIDE
     Dosage: UNK
     Dates: start: 20170414, end: 20191119
  31. DEXABENE [Concomitant]
     Dosage: UNK
     Dates: start: 20181107
  32. DEXAMETHASONE [Concomitant]
     Active Substance: DEXAMETHASONE
     Dosage: UNK (ONGOING = NOT CHECKED)
     Dates: start: 20181017
  33. DEXAMETHASONE [Concomitant]
     Active Substance: DEXAMETHASONE
     Dosage: UNK (ONGOING = NOT CHECKED)
     Dates: start: 20180723, end: 20181017
  34. METHYLPREDNISOLONE [Concomitant]
     Active Substance: METHYLPREDNISOLONE
     Dosage: UNK
     Dates: start: 20191210
  35. CORTISONE ACETATE [Concomitant]
     Active Substance: CORTISONE ACETATE
     Dosage: UNK (ONGOING = NOT CHECKED)
     Dates: start: 20180608, end: 20180608
  36. HYDROCHLOROTHIAZIDE\RAMIPRIL [Concomitant]
     Active Substance: HYDROCHLOROTHIAZIDE\RAMIPRIL
     Dosage: UNK (ONGOING = CHECKED)
  37. CAL D VITA [Concomitant]
     Dosage: UNK
     Dates: start: 20170505, end: 20190615
  38. XGEVA [Concomitant]
     Active Substance: DENOSUMAB
     Dosage: UNK
     Dates: start: 20170505, end: 20180329
  39. XGEVA [Concomitant]
     Active Substance: DENOSUMAB
     Dosage: UNK
     Dates: start: 20181017
  40. PANTOPRAZOLE [Concomitant]
     Active Substance: PANTOPRAZOLE
     Dosage: UNK, ONGOING = CHECKED
  41. DIMETHINDENE [Concomitant]
     Active Substance: DIMETHINDENE
     Dosage: UNK (ONGOING = CHECKED)
     Dates: start: 20170414
  42. VIBRAMYCIN [Concomitant]
     Active Substance: DOXYCYCLINE
     Indication: Sinusitis
     Dosage: UNK,ONGOING = NOT CHECKED
     Dates: start: 20180417, end: 20180615

REACTIONS (14)
  - Underdose [Unknown]
  - Renal pain [Recovered/Resolved]
  - Flank pain [Recovered/Resolved]
  - Dysgeusia [Recovered/Resolved]
  - Polyneuropathy [Unknown]
  - Ejection fraction decreased [Not Recovered/Not Resolved]
  - Dyspnoea exertional [Recovered/Resolved]
  - Dyspnoea [Recovered/Resolved]
  - Hypertension [Recovered/Resolved]
  - Fatigue [Recovered/Resolved]
  - Diarrhoea [Recovered/Resolved]
  - Pyrexia [Not Recovered/Not Resolved]
  - Sinusitis [Recovered/Resolved]
  - Paraesthesia [Recovered/Resolved]

NARRATIVE: CASE EVENT DATE: 20171030
